FAERS Safety Report 24651721 (Version 2)
Quarter: 2024Q4

REPORT INFORMATION
  Report Type: Report from Study
  Country: US (occurrence: US)
  Receive Date: 20241122
  Receipt Date: 20241221
  Transmission Date: 20250115
  Serious: Yes (Other)
  Sender: ABBVIE
  Company Number: US-ABBVIE-5971110

PATIENT
  Age: 71 Year
  Sex: Female
  Weight: 93 kg

DRUGS (10)
  1. SKYRIZI [Suspect]
     Active Substance: RISANKIZUMAB-RZAA
     Indication: Psoriatic arthropathy
     Route: 058
     Dates: start: 20240325
  2. GLIPIZIDE [Concomitant]
     Active Substance: GLIPIZIDE
     Indication: Hepatic function abnormal
  3. LYRICA [Concomitant]
     Active Substance: PREGABALIN
     Indication: Neuralgia
  4. CARVEDILOL [Concomitant]
     Active Substance: CARVEDILOL
     Indication: Hypertension
  5. GABAPENTIN [Concomitant]
     Active Substance: GABAPENTIN
     Indication: Nervous system disorder
  6. PANTOPRAZOLE [Concomitant]
     Active Substance: PANTOPRAZOLE
     Indication: Dyspepsia
  7. ONDANSETRON [Concomitant]
     Active Substance: ONDANSETRON
     Indication: Nausea
  8. FAMOTIDINE [Concomitant]
     Active Substance: FAMOTIDINE
     Indication: Gastrooesophageal reflux disease
  9. TRULICITY [Concomitant]
     Active Substance: DULAGLUTIDE
     Indication: Blood glucose abnormal
  10. METFORMIN [Concomitant]
     Active Substance: METFORMIN HYDROCHLORIDE
     Indication: Blood glucose

REACTIONS (7)
  - Cataract [Recovered/Resolved]
  - Eyelid ptosis [Recovered/Resolved]
  - Skin exfoliation [Not Recovered/Not Resolved]
  - Diarrhoea [Unknown]
  - Excessive skin [Not Recovered/Not Resolved]
  - Pain [Not Recovered/Not Resolved]
  - Nasopharyngitis [Unknown]

NARRATIVE: CASE EVENT DATE: 20240101
